FAERS Safety Report 12252504 (Version 2)
Quarter: 2016Q2

REPORT INFORMATION
  Report Type: Report from Study
  Country: US (occurrence: US)
  Receive Date: 20160411
  Receipt Date: 20160604
  Transmission Date: 20160815
  Serious: No
  Sender: FDA-Public Use
  Company Number: PHEH2016US008257

PATIENT
  Age: 49 Year
  Sex: Female

DRUGS (2)
  1. ECONAZOL [Concomitant]
     Indication: FUNGAL INFECTION
     Route: 065
  2. COSENTYX [Suspect]
     Active Substance: SECUKINUMAB
     Indication: PSORIASIS
     Dosage: 300 MG, QMO
     Route: 058
     Dates: end: 20160224

REACTIONS (8)
  - Hyperkeratosis [Unknown]
  - Nephrolithiasis [Recovering/Resolving]
  - Skin exfoliation [Unknown]
  - Actinic keratosis [Unknown]
  - Pain [Unknown]
  - Haemangioma of skin [Unknown]
  - Papule [Unknown]
  - Psoriasis [Unknown]

NARRATIVE: CASE EVENT DATE: 201601
